FAERS Safety Report 8042595-5 (Version None)
Quarter: 2012Q1

REPORT INFORMATION
  Report Type: 
  Country: None (occurrence: None)
  Receive Date: 20120112
  Receipt Date: 20111212
  Transmission Date: 20120608
  Serious: No
  Sender: FDA-Public Use
  Company Number: US-BAUSCH-2011BL008774

PATIENT
  Age: 67 Year
  Sex: Male

DRUGS (3)
  1. ZIRGAN [Suspect]
     Indication: HERPES SIMPLEX
     Route: 047
     Dates: start: 20111207
  2. TOBRAMYCIN [Concomitant]
     Indication: BACTERIAL INFECTION
     Route: 047
     Dates: start: 20111207
  3. OPTIVE REFRESH [Concomitant]

REACTIONS (4)
  - VISION BLURRED [None]
  - PUNCTATE KERATITIS [None]
  - DIPLOPIA [None]
  - VISUAL ACUITY REDUCED [None]
